FAERS Safety Report 8443151-7 (Version None)
Quarter: 2012Q2

REPORT INFORMATION
  Report Type: 
  Country: None (occurrence: None)
  Receive Date: 20120615
  Receipt Date: 20120606
  Transmission Date: 20120825
  Serious: Yes (Hospitalization)
  Sender: FDA-Public Use
  Company Number: US-ALLERGAN-1202453US

PATIENT
  Age: 32 Year
  Sex: Female

DRUGS (2)
  1. BOTOX COSMETIC [Suspect]
     Indication: SKIN WRINKLING
     Dosage: 28 UNITS, SINGLE
     Route: 030
     Dates: start: 20120214, end: 20120214
  2. BOTOX COSMETIC [Suspect]

REACTIONS (15)
  - HEART RATE IRREGULAR [None]
  - PALPITATIONS [None]
  - FATIGUE [None]
  - DYSPHONIA [None]
  - DYSPNOEA [None]
  - PHARYNGEAL OEDEMA [None]
  - WEIGHT DECREASED [None]
  - MIGRAINE [None]
  - SINUS DISORDER [None]
  - SENSATION OF FOREIGN BODY [None]
  - HEADACHE [None]
  - DECREASED APPETITE [None]
  - IMMUNE SYSTEM DISORDER [None]
  - PANIC ATTACK [None]
  - LOCAL SWELLING [None]
